FAERS Safety Report 10413636 (Version 1)
Quarter: 2014Q3

REPORT INFORMATION
  Report Type: Spontaneous
  Country: CH (occurrence: CH)
  Receive Date: 20140827
  Receipt Date: 20140827
  Transmission Date: 20150326
  Serious: Yes (Other)
  Sender: FDA-Public Use
  Company Number: CH-TEVA-503669ISR

PATIENT
  Age: 65 Year
  Sex: Female

DRUGS (11)
  1. COAPROVEL [Concomitant]
     Active Substance: HYDROCHLOROTHIAZIDE\IRBESARTAN
     Indication: ESSENTIAL HYPERTENSION
     Route: 048
  2. ARAVA [Concomitant]
     Active Substance: LEFLUNOMIDE
     Dosage: 20 MILLIGRAM DAILY;
     Route: 048
  3. MST CONTINUS [Concomitant]
     Active Substance: MORPHINE SULFATE
     Indication: ARTHRALGIA
     Dosage: 10 MILLIGRAM DAILY;
     Route: 048
     Dates: end: 201405
  4. KAPANOL [Concomitant]
     Indication: ARTHRALGIA
     Dosage: 20 MILLIGRAM DAILY;
     Route: 048
  5. PANTOPRAZOLE [Concomitant]
     Active Substance: PANTOPRAZOLE SODIUM
     Dosage: 40 MILLIGRAM DAILY;
     Route: 048
  6. RIVOTRIL [Concomitant]
     Active Substance: CLONAZEPAM
     Indication: NEURALGIA
     Dosage: 20 GTT DAILY;
     Route: 048
  7. IRFEN [Suspect]
     Active Substance: IBUPROFEN
     Indication: ARTHRALGIA
     Dosage: 1600 MILLIGRAM DAILY;
     Route: 048
     Dates: end: 20140520
  8. PLAVIX [Suspect]
     Active Substance: CLOPIDOGREL BISULFATE
     Indication: ISCHAEMIC CEREBRAL INFARCTION
     Dosage: 75 MILLIGRAM DAILY;
     Route: 048
  9. TEMESTA [Concomitant]
     Active Substance: LORAZEPAM
     Dosage: 2.5 MILLIGRAM DAILY;
     Route: 048
  10. BENLYSTA [Interacting]
     Active Substance: BELIMUMAB
     Indication: UNDIFFERENTIATED CONNECTIVE TISSUE DISEASE
     Route: 040
     Dates: start: 20140131, end: 20140505
  11. NEURONTIN [Concomitant]
     Active Substance: GABAPENTIN
     Indication: NEURALGIA
     Dosage: 300 MILLIGRAM DAILY;
     Route: 048

REACTIONS (3)
  - Condition aggravated [Recovered/Resolved]
  - Drug interaction [Recovered/Resolved]
  - Spontaneous haematoma [Recovered/Resolved]

NARRATIVE: CASE EVENT DATE: 2014
